FAERS Safety Report 21057994 (Version 1)
Quarter: 2022Q3

REPORT INFORMATION
  Report Type: Spontaneous
  Country: CN (occurrence: CN)
  Receive Date: 20220708
  Receipt Date: 20220708
  Transmission Date: 20221027
  Serious: Yes (Other)
  Sender: FDA-Public Use
  Company Number: None

PATIENT
  Age: 24 Year
  Sex: Female
  Weight: 62.5 kg

DRUGS (6)
  1. CYCLOPHOSPHAMIDE [Suspect]
     Active Substance: CYCLOPHOSPHAMIDE
     Indication: Acute lymphocytic leukaemia
     Dosage: 400 MG, EVERY 2 DY, CYCLOPHOSPHAMIDE FOR INJECTION (400 MG) IVGTT + 0.9% SODIUM CHLORIDE INJECTION (
     Route: 041
     Dates: start: 20220523, end: 20220525
  2. CYCLOPHOSPHAMIDE [Suspect]
     Active Substance: CYCLOPHOSPHAMIDE
     Indication: B-cell type acute leukaemia
  3. SODIUM CHLORIDE [Suspect]
     Active Substance: SODIUM CHLORIDE
     Indication: Medication dilution
     Dosage: 250 ML, EVERY 2 DY, CYCLOPHOSPHAMIDE FOR INJECTION (400 MG) IVGTT + 0.9% SODIUM CHLORIDE INJECTION (
     Route: 041
     Dates: start: 20220523, end: 20220525
  4. SODIUM CHLORIDE [Suspect]
     Active Substance: SODIUM CHLORIDE
     Dosage: 180 ML, 1X A WEEK,  ROUTE-INTRAVENOUS INJECTION, VINCRISTINE SULFATE (2 MG) + SODIUM CHLORIDE INJECT
     Route: 042
     Dates: start: 20220526, end: 20220602
  5. VINCRISTINE SULFATE [Suspect]
     Active Substance: VINCRISTINE SULFATE
     Indication: Acute lymphocytic leukaemia
     Dosage: 2 MG, 1X A WEEK,ROUTE-INTRAVENOUS INJECTION, VINCRISTINE SULFATE (2 MG) + SODIUM CHLORIDE INJECTION
     Route: 042
     Dates: start: 20220526, end: 20220602
  6. VINCRISTINE SULFATE [Suspect]
     Active Substance: VINCRISTINE SULFATE
     Indication: B-cell type acute leukaemia

REACTIONS (1)
  - Myelosuppression [Recovering/Resolving]

NARRATIVE: CASE EVENT DATE: 20220602
